FAERS Safety Report 4502201-0 (Version None)
Quarter: 2004Q4

REPORT INFORMATION
  Report Type: 
  Country: None (occurrence: None)
  Receive Date: 20041109
  Receipt Date: 20041025
  Transmission Date: 20050328
  Serious: Yes (Hospitalization)
  Sender: FDA-Public Use
  Company Number: EWC041041179

PATIENT
  Age: 70 Year
  Sex: Male

DRUGS (2)
  1. GEMCITABINE HYDROCHLORIDE-IV (GEMCITABINE) [Suspect]
     Indication: BLADDER CANCER
     Dosage: 1000 MG/M2/1 OTHER
  2. TAXOTERE [Concomitant]

REACTIONS (4)
  - CAPILLARY LEAK SYNDROME [None]
  - ECHOCARDIOGRAM ABNORMAL [None]
  - PNEUMONIA [None]
  - PULMONARY HYPERTENSION [None]
